FAERS Safety Report 8122394-6 (Version None)
Quarter: 2012Q1

REPORT INFORMATION
  Report Type: 
  Country: None (occurrence: None)
  Receive Date: 20120208
  Receipt Date: 20120203
  Transmission Date: 20120608
  Serious: Yes (Hospitalization)
  Sender: FDA-Public Use
  Company Number: US-GLAXOSMITHKLINE-A0964597A

PATIENT
  Age: 55 Year
  Sex: Female

DRUGS (6)
  1. ANTIBIOTICS [Concomitant]
  2. ADVAIR DISKUS 100/50 [Suspect]
     Indication: CHRONIC OBSTRUCTIVE PULMONARY DISEASE
     Dosage: 1PUFF TWICE PER DAY
     Route: 055
  3. ALBUTEROL [Concomitant]
  4. NEBULIZER [Concomitant]
  5. PREDNISONE [Concomitant]
  6. IPRATROPIUM BROMIDE [Concomitant]

REACTIONS (3)
  - DYSPNOEA [None]
  - ASTHMA [None]
  - BRONCHITIS [None]
